FAERS Safety Report 17677622 (Version 1)
Quarter: 2020Q2

REPORT INFORMATION
  Report Type: Spontaneous
  Country: US (occurrence: US)
  Receive Date: 20200416
  Receipt Date: 20200416
  Transmission Date: 20200714
  Serious: No
  Sender: FDA-Public Use
  Company Number: US-009507513-2004USA003260

PATIENT
  Age: 37 Year
  Sex: Male
  Weight: 187 kg

DRUGS (2)
  1. ZERBAXA [Suspect]
     Active Substance: CEFTOLOZANE SULFATE\TAZOBACTAM SODIUM
     Dosage: 9 G/DAY CONTINUOUS INFUSION REPLACED EVERY 8 HR.
     Route: 042
  2. ZERBAXA [Suspect]
     Active Substance: CEFTOLOZANE SULFATE\TAZOBACTAM SODIUM
     Indication: CONTINUOUS HAEMODIAFILTRATION
     Dosage: 3 GRAMS IV EVERY 8 HR OVER 1HR
     Route: 042

REACTIONS (1)
  - Product use in unapproved indication [Unknown]
